FAERS Safety Report 23285064 (Version 1)
Quarter: 2023Q4

REPORT INFORMATION
  Report Type: Report from Study
  Country: US (occurrence: US)
  Receive Date: 20231211
  Receipt Date: 20231211
  Transmission Date: 20240109
  Serious: Yes (Hospitalization)
  Sender: FDA-Public Use
  Company Number: US-ABBVIE-5526986

PATIENT
  Sex: Female

DRUGS (1)
  1. HUMIRA [Suspect]
     Active Substance: ADALIMUMAB
     Indication: Crohn^s disease
     Route: 058
     Dates: start: 20221130

REACTIONS (5)
  - Crohn^s disease [Recovering/Resolving]
  - Drug ineffective [Unknown]
  - Gait disturbance [Unknown]
  - Skin ulcer [Recovering/Resolving]
  - Lip ulceration [Recovering/Resolving]
